FAERS Safety Report 21726312 (Version 1)
Quarter: 2022Q4

REPORT INFORMATION
  Report Type: Spontaneous
  Country: US (occurrence: None)
  Receive Date: 20221213
  Receipt Date: 20221213
  Transmission Date: 20230112
  Serious: Yes (Hospitalization)
  Sender: FDA-Public Use
  Company Number: None

PATIENT
  Sex: Female

DRUGS (1)
  1. EPOPROSTENOL [Suspect]
     Active Substance: EPOPROSTENOL
     Indication: Pulmonary arterial hypertension
     Dosage: OTHER QUANTITY : 30 NG/KG/MIN;?OTHER FREQUENCY : CONTINUOUS;?OTHER ROUTE : IV INFUSION;?
     Route: 042
     Dates: start: 20220906

REACTIONS (1)
  - Hospitalisation [None]
